FAERS Safety Report 8431832-0 (Version None)
Quarter: 2012Q2

REPORT INFORMATION
  Report Type: 
  Country: None (occurrence: None)
  Receive Date: 20120606
  Receipt Date: 20120522
  Transmission Date: 20120825
  Serious: Yes (Hospitalization, Other)
  Sender: FDA-Public Use
  Company Number: 2012PL000098

PATIENT
  Sex: Female

DRUGS (1)
  1. ALOSETRON HYDROCHLORIDE [Suspect]

REACTIONS (1)
  - COLITIS ISCHAEMIC [None]
